FAERS Safety Report 8845954 (Version 2)
Quarter: 2012Q4

REPORT INFORMATION
  Report Type: 
  Country: BR (occurrence: BR)
  Receive Date: 20121017
  Receipt Date: 20121115
  Transmission Date: 20130627
  Serious: Yes (Other)
  Sender: FDA-Public Use
  Company Number: BR-ASTRAZENECA-2012SE77199

PATIENT
  Age: 63 Year
  Sex: Male

DRUGS (2)
  1. CRESTOR [Suspect]
     Indication: ANGIOPATHY
     Route: 048
     Dates: start: 2008, end: 201209
  2. CRESTOR [Suspect]
     Indication: ANGIOPATHY
     Route: 048
     Dates: start: 201209

REACTIONS (2)
  - Carotid artery occlusion [Not Recovered/Not Resolved]
  - Prostate cancer [Recovered/Resolved]
